FAERS Safety Report 4542593-X (Version None)
Quarter: 2004Q4

REPORT INFORMATION
  Report Type: 
  Country: None (occurrence: None)
  Receive Date: 20041230
  Receipt Date: 20041221
  Transmission Date: 20050328
  Serious: Yes (Life-Threatening, Disabling)
  Sender: FDA-Public Use
  Company Number: US-MERCK-0412USA02654

PATIENT
  Age: 57 Year
  Sex: Female

DRUGS (3)
  1. TUMS [Concomitant]
     Route: 065
  2. VIOXX [Suspect]
     Indication: ARTHRITIS
     Route: 048
     Dates: end: 20030101
  3. NEXIUM [Concomitant]
     Route: 065

REACTIONS (3)
  - CHEST PAIN [None]
  - HEART RATE INCREASED [None]
  - TACHYCARDIA [None]
